FAERS Safety Report 14946200 (Version 2)
Quarter: 2018Q2

REPORT INFORMATION
  Report Type: Spontaneous
  Country: US (occurrence: US)
  Receive Date: 20180529
  Receipt Date: 20180530
  Transmission Date: 20180711
  Serious: Yes (Other)
  Sender: FDA-Public Use
  Company Number: US-SUNOVION-2018SUN002044

PATIENT

DRUGS (1)
  1. LATUDA [Suspect]
     Active Substance: LURASIDONE HYDROCHLORIDE
     Dosage: UNK, REGIMEN #1
     Route: 048

REACTIONS (8)
  - Diplopia [Unknown]
  - Emotional disorder [Unknown]
  - Loss of consciousness [Unknown]
  - Contusion [Not Recovered/Not Resolved]
  - Vision blurred [Unknown]
  - Confusional state [Unknown]
  - Fall [Unknown]
  - Memory impairment [Recovering/Resolving]
